FAERS Safety Report 24195399 (Version 7)
Quarter: 2025Q4

REPORT INFORMATION
  Report Type: Report from Study
  Country: CA (occurrence: CA)
  Receive Date: 20240809
  Receipt Date: 20251106
  Transmission Date: 20260117
  Serious: Yes (Other)
  Sender: TAKEDA
  Company Number: CA-TAKEDA-2024TUS058667

PATIENT
  Age: 45 Year
  Sex: Female

DRUGS (13)
  1. VEDOLIZUMAB [Suspect]
     Active Substance: VEDOLIZUMAB
     Indication: Colitis ulcerative
     Dosage: 300 MILLIGRAM
  2. VEDOLIZUMAB [Suspect]
     Active Substance: VEDOLIZUMAB
     Dosage: 300 MILLIGRAM
  3. VEDOLIZUMAB [Suspect]
     Active Substance: VEDOLIZUMAB
     Dosage: 300 MILLIGRAM
  4. VEDOLIZUMAB [Suspect]
     Active Substance: VEDOLIZUMAB
     Dosage: 300 MILLIGRAM
  5. VEDOLIZUMAB [Suspect]
     Active Substance: VEDOLIZUMAB
     Dosage: 300 MILLIGRAM
  6. VEDOLIZUMAB [Suspect]
     Active Substance: VEDOLIZUMAB
     Dosage: 300 MILLIGRAM, Q4WEEKS
     Dates: start: 20251007
  7. MESALAMINE [Concomitant]
     Active Substance: MESALAMINE
     Dosage: UNK
  8. POTASSIUM [Concomitant]
     Active Substance: POTASSIUM
     Dosage: UNK
  9. MAGNESIUM [Concomitant]
     Active Substance: MAGNESIUM
     Dosage: UNK
  10. ADALAT [Concomitant]
     Active Substance: NIFEDIPINE
     Dosage: 30 MILLIGRAM, QD
  11. PANTOPRAZOLE [Concomitant]
     Active Substance: PANTOPRAZOLE
     Dosage: 40 MILLIGRAM, QD
  12. METOCLOPRAMIDE [Concomitant]
     Active Substance: METOCLOPRAMIDE
     Dosage: 5 MILLIGRAM, QID
  13. MESALAMINE [Concomitant]
     Active Substance: MESALAMINE
     Dosage: UNK

REACTIONS (10)
  - Rectal haemorrhage [Recovered/Resolved]
  - Colitis ulcerative [Recovering/Resolving]
  - Haematochezia [Recovering/Resolving]
  - Clostridium difficile infection [Unknown]
  - Diarrhoea [Recovered/Resolved]
  - Therapeutic reaction time decreased [Unknown]
  - Frequent bowel movements [Recovering/Resolving]
  - Off label use [Unknown]
  - Vomiting [Recovering/Resolving]
  - Nasopharyngitis [Unknown]

NARRATIVE: CASE EVENT DATE: 20251007
